FAERS Safety Report 9426308 (Version 1)
Quarter: 2013Q3

REPORT INFORMATION
  Report Type: Spontaneous
  Country: GB (occurrence: GB)
  Receive Date: 20130730
  Receipt Date: 20130730
  Transmission Date: 20140515
  Serious: Yes (Other)
  Sender: FDA-Public Use
  Company Number: GB-BRISTOL-MYERS SQUIBB COMPANY-19013119

PATIENT
  Age: 64 Year
  Sex: Male

DRUGS (3)
  1. BYDUREON [Suspect]
     Indication: TYPE 2 DIABETES MELLITUS
     Dosage: NO OF INJECTIONS:9
     Route: 058
     Dates: start: 20130510
  2. BYETTA PEN DISPOSABLE [Suspect]
     Indication: TYPE 2 DIABETES MELLITUS
     Dosage: STRENGTH:250MCG/ML 10 MCG
     Route: 058
  3. METFORMIN HCL [Suspect]

REACTIONS (5)
  - Weight decreased [Unknown]
  - Hypoglycaemia [Unknown]
  - Glycosylated haemoglobin increased [Unknown]
  - Therapeutic response decreased [Unknown]
  - Skin disorder [Unknown]
